FAERS Safety Report 20491819 (Version 3)
Quarter: 2022Q2

REPORT INFORMATION
  Report Type: Spontaneous
  Country: US (occurrence: US)
  Receive Date: 20220218
  Receipt Date: 20220510
  Transmission Date: 20220721
  Serious: No
  Sender: FDA-Public Use
  Company Number: US-MYLANLABS-2022M1011487

PATIENT

DRUGS (1)
  1. ESTRADIOL TRANSDERMAL SYSTEM [Suspect]
     Active Substance: ESTRADIOL
     Indication: Product used for unknown indication
     Dosage: 0.05 MILLIGRAM, QD (ONCE WEEKLY)
     Route: 062

REACTIONS (10)
  - Hot flush [Unknown]
  - Application site discomfort [Unknown]
  - Application site irritation [Unknown]
  - Application site scar [Unknown]
  - Application site pain [Unknown]
  - Application site erythema [Unknown]
  - Application site pruritus [Unknown]
  - Application site odour [Unknown]
  - Product adhesion issue [Unknown]
  - Drug ineffective [Unknown]
